FAERS Safety Report 13076866 (Version 2)
Quarter: 2017Q1

REPORT INFORMATION
  Report Type: Spontaneous
  Country: FR (occurrence: FR)
  Receive Date: 20161230
  Receipt Date: 20170228
  Transmission Date: 20170428
  Serious: Yes (Hospitalization)
  Sender: FDA-Public Use
  Company Number: FR-PFIZER INC-2016599883

PATIENT
  Age: 55 Year
  Sex: Male

DRUGS (9)
  1. OMEPRAZOLE. [Suspect]
     Active Substance: OMEPRAZOLE
     Dosage: 1 DF, DAILY
     Route: 048
     Dates: start: 2016
  2. METFORMIN HCL [Suspect]
     Active Substance: METFORMIN HYDROCHLORIDE
     Indication: DIABETES MELLITUS
     Dosage: 850 MG, DAILY
     Route: 048
     Dates: start: 2016
  3. BRILIQUE [Suspect]
     Active Substance: TICAGRELOR
     Indication: INFARCTION
     Dosage: 90 MG, UNK
     Route: 048
     Dates: start: 201605
  4. KARDEGIC [Suspect]
     Active Substance: ASPIRIN LYSINE
     Indication: INFARCTION
     Dosage: 75 MG, DAILY
     Route: 048
     Dates: start: 201605
  5. RAMIPRIL. [Suspect]
     Active Substance: RAMIPRIL
     Indication: HYPERTENSION
     Dosage: 2.5 MG, DAILY
     Route: 048
     Dates: start: 2016
  6. BISOPROLOL FUMARATE. [Suspect]
     Active Substance: BISOPROLOL FUMARATE
     Dosage: 10 MG, DAILY
     Route: 048
     Dates: start: 2016
  7. PRAVASTATIN SODIUM. [Suspect]
     Active Substance: PRAVASTATIN SODIUM
     Dosage: 40 MG, DAILY
     Route: 048
     Dates: start: 2016, end: 201612
  8. TRINITRINE [Suspect]
     Active Substance: NITROGLYCERIN
     Dosage: 0.3 MG, AS NEEDED
     Route: 048
     Dates: start: 2016
  9. VICTOZA [Suspect]
     Active Substance: LIRAGLUTIDE
     Indication: DIABETES MELLITUS
     Dosage: 1.2 IU, DAILY
     Dates: start: 2016, end: 201612

REACTIONS (1)
  - Hypertriglyceridaemia [Not Recovered/Not Resolved]

NARRATIVE: CASE EVENT DATE: 201606
